FAERS Safety Report 7980048-0 (Version None)
Quarter: 2011Q4

REPORT INFORMATION
  Report Type: 
  Country: None (occurrence: None)
  Receive Date: 20111212
  Receipt Date: 20111129
  Transmission Date: 20120403
  Serious: Yes (Other)
  Sender: FDA-Public Use
  Company Number: 2011S1000372

PATIENT
  Age: 2 Month
  Sex: Female

DRUGS (2)
  1. INOMAX [Suspect]
     Indication: PULMONARY HYPERTENSION
     Dosage: 20 PPM; CONT; INH
     Route: 055
     Dates: start: 20111123
  2. INOMAX [Suspect]

REACTIONS (3)
  - OBSTRUCTIVE AIRWAYS DISORDER [None]
  - DEVICE FAILURE [None]
  - OXYGEN SATURATION DECREASED [None]
